FAERS Safety Report 23608029 (Version 1)
Quarter: 2024Q1

REPORT INFORMATION
  Report Type: Spontaneous
  Country: US (occurrence: US)
  Receive Date: 20240307
  Receipt Date: 20240307
  Transmission Date: 20240410
  Serious: No
  Sender: FDA-Public Use
  Company Number: US-BIOGEN-2024BI01252966

PATIENT

DRUGS (2)
  1. SPINRAZA [Suspect]
     Active Substance: NUSINERSEN
     Indication: Product used for unknown indication
     Route: 050
  2. EVRYSDI [Concomitant]
     Active Substance: RISDIPLAM
     Indication: Product used for unknown indication
     Route: 050

REACTIONS (1)
  - Fatigue [Unknown]
